FAERS Safety Report 24722259 (Version 1)
Quarter: 2024Q4

REPORT INFORMATION
  Report Type: Spontaneous
  Country: US (occurrence: US)
  Receive Date: 20241211
  Receipt Date: 20241211
  Transmission Date: 20250115
  Serious: No
  Sender: BAYER HEALTHCARE PHARMACEUTICALS INC.
  Company Number: US-BAYER-2024A172989

PATIENT
  Age: 43 Year
  Sex: Female

DRUGS (5)
  1. RIOCIGUAT [Suspect]
     Active Substance: RIOCIGUAT
     Indication: Product used for unknown indication
  2. TREPROSTINIL [Suspect]
     Active Substance: TREPROSTINIL
     Indication: Pulmonary arterial hypertension
     Dosage: 14.5 MG, TID
     Route: 048
     Dates: start: 202103
  3. ORENITRAM [Suspect]
     Active Substance: TREPROSTINIL
     Indication: Pulmonary arterial hypertension
     Dosage: UNK
     Route: 048
  4. SOTATERCEPT [Suspect]
     Active Substance: SOTATERCEPT
     Dosage: UNK
     Dates: start: 20241029
  5. OPSUMIT [Concomitant]
     Active Substance: MACITENTAN

REACTIONS (10)
  - Flushing [None]
  - Nausea [None]
  - Retching [None]
  - Vomiting [None]
  - Dyspnoea exertional [None]
  - Palpitations [None]
  - Diarrhoea [Not Recovered/Not Resolved]
  - Appetite disorder [None]
  - Pollakiuria [None]
  - Gastrointestinal disorder [None]
